FAERS Safety Report 7157440-X (Version None)
Quarter: 2010Q4

REPORT INFORMATION
  Report Type: 
  Country: None (occurrence: None)
  Receive Date: 20101214
  Receipt Date: 20101210
  Transmission Date: 20110411
  Serious: Yes (Death, Life-Threatening, Hospitalization, Disabling, Other)
  Sender: FDA-Public Use
  Company Number: A0899312A

PATIENT
  Age: 65 Year
  Sex: Female

DRUGS (16)
  1. PROMACTA [Suspect]
     Indication: IDIOPATHIC THROMBOCYTOPENIC PURPURA
     Dosage: 50MG TWICE PER DAY
     Route: 048
     Dates: start: 20090901, end: 20100908
  2. ADVAIR DISKUS 100/50 [Concomitant]
  3. ALDACTONE [Concomitant]
  4. AMITRIPTYLINE [Concomitant]
  5. CELEBREX [Concomitant]
  6. CLARITIN [Concomitant]
  7. FENTANYL [Concomitant]
  8. LASIX [Concomitant]
  9. LEXAPRO [Concomitant]
  10. PREDNISONE [Concomitant]
  11. ZOLPIDEM TARTRATE [Concomitant]
  12. ATARAX [Concomitant]
  13. LISINOPRIL [Concomitant]
  14. LORAZEPAM [Concomitant]
  15. NORCO [Concomitant]
  16. ZOFRAN [Concomitant]

REACTIONS (2)
  - FALL [None]
  - RESPIRATORY FAILURE [None]
